FAERS Safety Report 4705117-X (Version None)
Quarter: 2005Q3

REPORT INFORMATION
  Report Type: 
  Country: None (occurrence: None)
  Receive Date: 20050701
  Receipt Date: 20050616
  Transmission Date: 20060218
  Serious: No
  Sender: FDA-Public Use
  Company Number: 200515285US

PATIENT
  Age: 71 Year
  Sex: Male

DRUGS (6)
  1. OPTICLIK (INSULIN INJECTION PEN) [Suspect]
     Indication: DIABETES MELLITUS NON-INSULIN-DEPENDENT
     Dosage: DOSE UNIT: UNITS
     Route: 051
  2. ACTOS [Concomitant]
     Dosage: DOSE: UNKNOWN
  3. BENICAR                                 /USA/ [Concomitant]
     Dosage: DOSE: UNKNOWN
  4. DYNACIRC [Concomitant]
     Dosage: DOSE: UNKNOWN
  5. SERUMLIPIDREDUCING AGENTS [Concomitant]
     Dosage: DOSE: UNKNOWN
  6. ASPIRIN [Concomitant]
     Dosage: DOSE: UNKNOWN

REACTIONS (4)
  - BLOOD GLUCOSE INCREASED [None]
  - DRUG ADMINISTRATION ERROR [None]
  - INJECTION SITE ERYTHEMA [None]
  - INJECTION SITE IRRITATION [None]
